FAERS Safety Report 11876766 (Version 1)
Quarter: 2015Q4

REPORT INFORMATION
  Report Type: Spontaneous
  Country: TW (occurrence: TW)
  Receive Date: 20151229
  Receipt Date: 20151229
  Transmission Date: 20160305
  Serious: Yes (Other)
  Sender: FDA-Public Use
  Company Number: TW-MYLANLABS-2015M1047123

PATIENT

DRUGS (4)
  1. SUNITINIB [Suspect]
     Active Substance: SUNITINIB
     Dosage: 25 MG/DAY
     Route: 065
  2. DOCETAXEL. [Suspect]
     Active Substance: DOCETAXEL
     Indication: LUNG ADENOCARCINOMA METASTATIC
     Route: 065
  3. SUNITINIB [Suspect]
     Active Substance: SUNITINIB
     Indication: LUNG ADENOCARCINOMA METASTATIC
     Dosage: 37.5 MG/DAY
     Route: 065
  4. CISPLATIN. [Concomitant]
     Active Substance: CISPLATIN
     Indication: LUNG ADENOCARCINOMA METASTATIC
     Route: 065

REACTIONS (5)
  - Neutropenia [Unknown]
  - Fatigue [Unknown]
  - Leukopenia [Unknown]
  - Malignant pleural effusion [Unknown]
  - Thrombocytopenia [Unknown]
